FAERS Safety Report 10671311 (Version 2)
Quarter: 2014Q4

REPORT INFORMATION
  Report Type: Report from Study
  Country: US (occurrence: US)
  Receive Date: 20141223
  Receipt Date: 20141223
  Transmission Date: 20150529
  Serious: Yes (Other)
  Sender: FDA-Public Use
  Company Number: US-ABBVIE-14K-163-1291769-00

PATIENT
  Age: 64 Year
  Sex: Male
  Weight: 82.17 kg

DRUGS (1)
  1. HUMIRA [Suspect]
     Active Substance: ADALIMUMAB
     Indication: RHEUMATOID ARTHRITIS
     Route: 050
     Dates: start: 201311, end: 201409

REACTIONS (2)
  - Blood creatinine increased [Unknown]
  - Renal disorder [Unknown]

NARRATIVE: CASE EVENT DATE: 201311
